FAERS Safety Report 5759259-0 (Version None)
Quarter: 2008Q2

REPORT INFORMATION
  Report Type: 
  Country: None (occurrence: None)
  Receive Date: 20080604
  Receipt Date: 20080528
  Transmission Date: 20081010
  Serious: Yes (Other)
  Sender: FDA-Public Use
  Company Number: RU-MERCK-0805RUS00006

PATIENT
  Age: 43 Year
  Sex: Female

DRUGS (8)
  1. SINGULAIR [Suspect]
     Indication: ASTHMA
     Route: 048
     Dates: end: 20080401
  2. SINGULAIR [Suspect]
     Indication: SEASONAL ALLERGY
     Route: 048
     Dates: end: 20080401
  3. BECLOMETHASONE DIPROPIONATE [Concomitant]
     Indication: ASTHMA
  4. BECLOMETHASONE DIPROPIONATE [Concomitant]
     Indication: SEASONAL ALLERGY
  5. FENOTEROL HYDROBROMIDE AND IPRATROPIUM BROMIDE [Concomitant]
     Indication: ASTHMA
     Route: 065
  6. FENOTEROL HYDROBROMIDE AND IPRATROPIUM BROMIDE [Concomitant]
     Indication: SEASONAL ALLERGY
     Route: 065
  7. BUDESONIDE [Concomitant]
     Indication: ASTHMA
     Route: 065
  8. BUDESONIDE [Concomitant]
     Indication: SEASONAL ALLERGY
     Route: 065

REACTIONS (2)
  - HEADACHE [None]
  - HYPERTENSION [None]
